FAERS Safety Report 10202789 (Version 3)
Quarter: 2014Q3

REPORT INFORMATION
  Report Type: Spontaneous
  Country: US (occurrence: US)
  Receive Date: 20140528
  Receipt Date: 20140722
  Transmission Date: 20150326
  Serious: Yes (Hospitalization, Other)
  Sender: FDA-Public Use
  Company Number: US-GILEAD-2014-0103537

PATIENT
  Sex: Female

DRUGS (1)
  1. LETAIRIS [Suspect]
     Active Substance: AMBRISENTAN
     Indication: PULMONARY ARTERIAL HYPERTENSION
     Dosage: 5 MG, QD
     Route: 065
     Dates: start: 20120918, end: 20140518

REACTIONS (3)
  - Oedema [Recovered/Resolved]
  - Cardiac failure [Unknown]
  - Cardiac failure congestive [Recovered/Resolved]
